FAERS Safety Report 14486428 (Version 1)
Quarter: 2018Q1

REPORT INFORMATION
  Report Type: Spontaneous
  Country: US (occurrence: US)
  Receive Date: 20180203
  Receipt Date: 20180203
  Transmission Date: 20180509
  Serious: Yes (Other)
  Sender: FDA-Public Use
  Company Number: None

PATIENT
  Age: 52 Year
  Sex: Female
  Weight: 82.35 kg

DRUGS (9)
  1. VITAMIN B COMPLEX [Concomitant]
     Active Substance: CYANOCOBALAMIN\DEXPANTHENOL\NIACINAMIDE\PYRIDOXINE HYDROCHLORIDE\RIBOFLAVIN 5^-PHOSPHATE SODIUM\THIAMINE HYDROCHLORIDE\VITAMIN B COMPLEX
  2. ADVIL [Concomitant]
     Active Substance: IBUPROFEN
  3. LAMOTRIGINE. [Concomitant]
     Active Substance: LAMOTRIGINE
  4. PRAVASTATIN. [Concomitant]
     Active Substance: PRAVASTATIN
  5. TYLENOL [Concomitant]
     Active Substance: ACETAMINOPHEN
  6. DEXTROAMPHET SACCHARAT, AMPHET ASPARTATE, DEXTROAMPHET SULFATE AND AMPHET SULFAT [Suspect]
     Active Substance: AMPHETAMINE ASPARTATE\AMPHETAMINE SULFATE\DEXTROAMPHETAMINE SACCHARATE\DEXTROAMPHETAMINE SULFATE
     Indication: ATTENTION DEFICIT/HYPERACTIVITY DISORDER
     Dosage: ?          QUANTITY:1 TABLET(S);?
     Route: 048
     Dates: start: 20180202
  7. ZIPRASIDONE. [Concomitant]
     Active Substance: ZIPRASIDONE
  8. TOPIRAMATE. [Concomitant]
     Active Substance: TOPIRAMATE
  9. CLONAZEPAM. [Concomitant]
     Active Substance: CLONAZEPAM

REACTIONS (5)
  - Headache [None]
  - Malaise [None]
  - Thirst [None]
  - Drug ineffective [None]
  - Product substitution issue [None]

NARRATIVE: CASE EVENT DATE: 20180202
